FAERS Safety Report 16917949 (Version 1)
Quarter: 2019Q4

REPORT INFORMATION
  Report Type: Spontaneous
  Country: IT (occurrence: IT)
  Receive Date: 20191015
  Receipt Date: 20191015
  Transmission Date: 20200122
  Serious: Yes (Other)
  Sender: FDA-Public Use
  Company Number: IT-ACCORD-120553

PATIENT
  Age: 76 Year
  Sex: Female
  Weight: 78 kg

DRUGS (6)
  1. LANSOX [Concomitant]
     Active Substance: LANSOPRAZOLE
  2. CAPECITABINE. [Suspect]
     Active Substance: CAPECITABINE
     Indication: COLORECTAL ADENOCARCINOMA
     Dosage: LAST ADMINISTERED 26-SEP-2019
     Route: 048
     Dates: start: 20180629
  3. BEVACIZUMAB. [Suspect]
     Active Substance: BEVACIZUMAB
     Indication: COLORECTAL ADENOCARCINOMA
     Dosage: LAST ADMINISTERED 30-AUG-2018
     Route: 042
     Dates: start: 20180629
  4. AVASTIN [Suspect]
     Active Substance: BEVACIZUMAB
     Indication: RECTAL ADENOCARCINOMA
     Dosage: STRENGTH 25 MG/ML, LAST ADMINISTERED: 26-SEP-2019
     Dates: start: 20180429
  5. CARDICOR [Concomitant]
     Active Substance: BISOPROLOL
  6. CAPECITABINE. [Suspect]
     Active Substance: CAPECITABINE
     Indication: COLORECTAL ADENOCARCINOMA
     Dosage: LAST ADMINISTERED 30-AUG-2018
     Route: 042
     Dates: start: 20180629

REACTIONS (7)
  - Haematochezia [Recovering/Resolving]
  - Diarrhoea [Recovering/Resolving]
  - Rectal tenesmus [Recovering/Resolving]
  - Asthenia [Recovering/Resolving]
  - Erythema [Recovering/Resolving]
  - Dry skin [Recovering/Resolving]
  - Palmar-plantar erythrodysaesthesia syndrome [Recovering/Resolving]

NARRATIVE: CASE EVENT DATE: 20180703
